FAERS Safety Report 9850099 (Version 1)
Quarter: 2014Q1

REPORT INFORMATION
  Report Type: Spontaneous
  Country: FR (occurrence: FR)
  Receive Date: 20140128
  Receipt Date: 20140128
  Transmission Date: 20141002
  Serious: Yes (Hospitalization)
  Sender: FDA-Public Use
  Company Number: PHHY2014FR009188

PATIENT
  Age: 75 Year
  Sex: Female

DRUGS (7)
  1. LEPONEX [Suspect]
     Indication: BIPOLAR DISORDER
     Dosage: UNK
     Dates: end: 20131113
  2. TAZOCILLINE [Concomitant]
     Dosage: UNK
  3. ATROVENT [Concomitant]
     Dosage: UNK
  4. DOLIPRANE [Concomitant]
     Dosage: UNK
  5. VENTOLINE [Concomitant]
     Dosage: UNK
  6. INEXIUM [Concomitant]
     Dosage: UNK
  7. ASPEGIC [Concomitant]
     Dosage: UNK

REACTIONS (1)
  - Extrapyramidal disorder [Recovering/Resolving]
